FAERS Safety Report 5097049-5 (Version None)
Quarter: 2006Q3

REPORT INFORMATION
  Report Type: 
  Country: None (occurrence: None)
  Receive Date: 20060906
  Receipt Date: 20060831
  Transmission Date: 20061208
  Serious: Yes (Death)
  Sender: FDA-Public Use
  Company Number: PHBS2006IT13267

PATIENT
  Age: 76 Year
  Sex: Female

DRUGS (6)
  1. VOLTAREN [Suspect]
     Indication: SPINAL FRACTURE
     Dosage: 150 MG/DAY
     Route: 030
     Dates: start: 20060429, end: 20060506
  2. MADOPAR [Suspect]
     Indication: PARKINSON'S DISEASE
     Dosage: 1000 MG/DAY
     Route: 048
     Dates: start: 20060101, end: 20060509
  3. COMTAN [Concomitant]
     Dosage: 4 TAB/DAY
  4. XANAX [Concomitant]
     Dosage: 0.25
  5. SEROQUEL [Concomitant]
     Dosage: 50
  6. MUSCORIL [Concomitant]
     Dosage: 1 DF/DAY
     Route: 030
     Dates: start: 20060429, end: 20060506

REACTIONS (9)
  - BLOOD CREATININE INCREASED [None]
  - BLOOD POTASSIUM INCREASED [None]
  - CARDIAC ARREST [None]
  - GASTRIC ULCER [None]
  - GASTROINTESTINAL NECROSIS [None]
  - HAEMATEMESIS [None]
  - METABOLIC ACIDOSIS [None]
  - OESOPHAGEAL ULCER [None]
  - RENAL FAILURE ACUTE [None]
